FAERS Safety Report 4286700-5 (Version None)
Quarter: 2004Q1

REPORT INFORMATION
  Report Type: 
  Country: None (occurrence: None)
  Receive Date: 20040204
  Receipt Date: 20040127
  Transmission Date: 20041129
  Serious: Yes (Other)
  Sender: FDA-Public Use
  Company Number: HQWYE575027JAN04

PATIENT

DRUGS (1)
  1. CORDAREX (AMIODARONE, UNSPEC) [Suspect]

REACTIONS (1)
  - ALVEOLITIS [None]
